FAERS Safety Report 15274609 (Version 1)
Quarter: 2018Q3

REPORT INFORMATION
  Report Type: Spontaneous
  Country: NL (occurrence: NL)
  Receive Date: 20180814
  Receipt Date: 20180814
  Transmission Date: 20181010
  Serious: Yes (Life-Threatening, Hospitalization, Other)
  Sender: FDA-Public Use
  Company Number: NL-AUROBINDO-AUR-APL-2018-041304

PATIENT
  Age: 69 Year
  Sex: Female
  Weight: 85 kg

DRUGS (2)
  1. HYDROCHLOROTHIAZIDE 25 MG [Interacting]
     Active Substance: HYDROCHLOROTHIAZIDE
     Indication: PRODUCT USED FOR UNKNOWN INDICATION
     Dosage: UNK
     Route: 065
  2. ESCITALOPRAM [Suspect]
     Active Substance: ESCITALOPRAM OXALATE
     Indication: DEPRESSION
     Dosage: 10 MILLIGRAM, ONCE A DAY, 1 X PER DAG 1 STUK
     Route: 065
     Dates: start: 20180712, end: 20180719

REACTIONS (3)
  - Hyponatraemia [Recovering/Resolving]
  - Depressed level of consciousness [Recovering/Resolving]
  - Drug interaction [Recovering/Resolving]

NARRATIVE: CASE EVENT DATE: 20180717
